FAERS Safety Report 9441974 (Version 1)
Quarter: 2013Q3

REPORT INFORMATION
  Report Type: Report from Study
  Country: CO (occurrence: CO)
  Receive Date: 20130806
  Receipt Date: 20130806
  Transmission Date: 20140515
  Serious: Yes (Death)
  Sender: FDA-Public Use
  Company Number: CO-ROCHE-1257635

PATIENT
  Age: 50 Year
  Sex: Male

DRUGS (1)
  1. CELLCEPT [Suspect]
     Indication: HEART TRANSPLANT
     Route: 048

REACTIONS (2)
  - Cardio-respiratory arrest [Fatal]
  - Cardiac failure acute [Fatal]
